FAERS Safety Report 6156315-2 (Version None)
Quarter: 2009Q2

REPORT INFORMATION
  Report Type: 
  Country: None (occurrence: None)
  Receive Date: 20090413
  Receipt Date: 20090331
  Transmission Date: 20091009
  Serious: Yes (Hospitalization)
  Sender: FDA-Public Use
  Company Number: 233552K09USA

PATIENT
  Age: 29 Year
  Sex: Female
  Weight: 75 kg

DRUGS (4)
  1. REBIF [Suspect]
     Indication: MULTIPLE SCLEROSIS
     Dosage: SUBCUTANEOUS
     Route: 058
     Dates: start: 20061221, end: 20080301
  2. EFFEXOR [Suspect]
     Indication: DEPRESSION
  3. AMITRIPTYLINE HYDROCHLORIDE [Suspect]
     Indication: PAIN
  4. BACLOFEN [Concomitant]

REACTIONS (4)
  - DEPRESSION [None]
  - INTENTIONAL OVERDOSE [None]
  - SUICIDAL IDEATION [None]
  - SUICIDE ATTEMPT [None]
